FAERS Safety Report 24888601 (Version 2)
Quarter: 2025Q1

REPORT INFORMATION
  Report Type: Report from Study
  Country: US (occurrence: US)
  Receive Date: 20250127
  Receipt Date: 20250220
  Transmission Date: 20250408
  Serious: Yes (Hospitalization)
  Sender: PAREXEL
  Company Number: US-STEMLINE THERAPEUTICS B.V.-2024-STML-US006614

PATIENT

DRUGS (2)
  1. ORSERDU [Suspect]
     Active Substance: ELACESTRANT
     Indication: Breast cancer female
     Dosage: 172 MG (86 MG 2 TABLET ONCE DAILY)
     Route: 048
     Dates: start: 20241114
  2. ORSERDU [Suspect]
     Active Substance: ELACESTRANT
     Dosage: 172 MG DAILY (86 MG 2 TABLET ONCE DAILY)
     Route: 048

REACTIONS (6)
  - Illness [Unknown]
  - Coordination abnormal [Unknown]
  - Speech disorder [Unknown]
  - Decreased appetite [Recovered/Resolved]
  - Underdose [Unknown]
  - Product dose omission issue [Unknown]

NARRATIVE: CASE EVENT DATE: 20241114
